FAERS Safety Report 8908890 (Version 1)
Quarter: 2012Q4

REPORT INFORMATION
  Report Type: 
  Country: TW (occurrence: TW)
  Receive Date: 20121114
  Receipt Date: 20121114
  Transmission Date: 20130627
  Serious: Yes (Other)
  Sender: FDA-Public Use
  Company Number: TW-PFIZER INC-2009158906

PATIENT
  Age: 41 Year
  Sex: Male

DRUGS (3)
  1. SILDENAFIL CITRATE [Suspect]
     Indication: ERECTILE DYSFUNCTION
     Dosage: recurrent doses
     Route: 048
  2. SILDENAFIL CITRATE [Suspect]
     Dosage: 50 mg, 1x/day
     Route: 048
  3. SILDENAFIL CITRATE [Suspect]
     Dosage: 50 mg, 1x/day
     Route: 048

REACTIONS (1)
  - Gouty arthritis [Recovered/Resolved]
